FAERS Safety Report 12258317 (Version 1)
Quarter: 2016Q2

REPORT INFORMATION
  Report Type: Other
  Country: IN (occurrence: IN)
  Receive Date: 20160412
  Receipt Date: 20160412
  Transmission Date: 20160815
  Serious: Yes (Other)
  Sender: FDA-Public Use
  Company Number: IN-B. BRAUN MEDICAL INC.-1050485

PATIENT
  Age: 27 Year
  Sex: Female

DRUGS (2)
  1. GENERAL ANAETHESIA [Concomitant]
  2. CEFUROXIME FOR INJECTION USP AND DEXTROSE INJECTION USP [Suspect]
     Active Substance: CEFUROXIME SODIUM
     Route: 042

REACTIONS (2)
  - Stress cardiomyopathy [None]
  - Anaphylactic reaction [None]
